FAERS Safety Report 4800146-X (Version None)
Quarter: 2005Q4

REPORT INFORMATION
  Report Type: 
  Country: None (occurrence: None)
  Receive Date: 20051017
  Receipt Date: 20051004
  Transmission Date: 20060501
  Serious: Yes (Hospitalization)
  Sender: FDA-Public Use
  Company Number: JP-GLAXOSMITHKLINE-B0397329A

PATIENT
  Age: 63 Year
  Sex: Female

DRUGS (1)
  1. ZOVIRAX [Suspect]

REACTIONS (3)
  - DIZZINESS [None]
  - DYSLALIA [None]
  - HEMIPLEGIA [None]
